FAERS Safety Report 22985293 (Version 2)
Quarter: 2023Q4

REPORT INFORMATION
  Report Type: Spontaneous
  Country: FR (occurrence: FR)
  Receive Date: 20230926
  Receipt Date: 20231004
  Transmission Date: 20240110
  Serious: Yes (Other)
  Sender: FDA-Public Use
  Company Number: FR-ROCHE-3415873

PATIENT
  Age: 70 Year
  Sex: Male
  Weight: 52.1 kg

DRUGS (18)
  1. DEXAMETHASONE [Suspect]
     Active Substance: DEXAMETHASONE
     Indication: Diffuse large B-cell lymphoma
     Dosage: UNK
     Route: 065
     Dates: start: 20220301, end: 20220701
  2. CARBOPLATIN [Suspect]
     Active Substance: CARBOPLATIN
     Indication: Diffuse large B-cell lymphoma
     Dosage: UNK
     Route: 065
     Dates: start: 20220710, end: 20220801
  3. PREDNISONE [Suspect]
     Active Substance: PREDNISONE
     Indication: Diffuse large B-cell lymphoma
     Dosage: UNK
     Route: 065
     Dates: start: 20181201, end: 20181201
  4. PREDNISONE [Suspect]
     Active Substance: PREDNISONE
     Dosage: UNK
     Route: 065
     Dates: start: 20200401, end: 20220101
  5. CISPLATIN [Suspect]
     Active Substance: CISPLATIN
     Indication: Diffuse large B-cell lymphoma
     Dosage: UNK
     Route: 065
     Dates: start: 20220301, end: 20220701
  6. ETOPOSIDE [Suspect]
     Active Substance: ETOPOSIDE
     Indication: Diffuse large B-cell lymphoma
     Dosage: UNK
     Route: 065
     Dates: start: 20220710, end: 20220801
  7. RITUXIMAB [Suspect]
     Active Substance: RITUXIMAB
     Indication: Diffuse large B-cell lymphoma
     Dosage: UNK
     Route: 065
     Dates: start: 20181201, end: 20181201
  8. RITUXIMAB [Suspect]
     Active Substance: RITUXIMAB
     Dosage: UNK
     Route: 065
     Dates: start: 20220301, end: 20220701
  9. RITUXIMAB [Suspect]
     Active Substance: RITUXIMAB
     Dosage: UNK
     Route: 065
     Dates: start: 20220710, end: 20220801
  10. BRENTUXIMAB VEDOTIN [Suspect]
     Active Substance: BRENTUXIMAB VEDOTIN
     Indication: Diffuse large B-cell lymphoma
     Dosage: UNK
     Route: 065
     Dates: start: 20200401, end: 20220101
  11. CYTARABINE [Suspect]
     Active Substance: CYTARABINE
     Indication: Diffuse large B-cell lymphoma
     Dosage: UNK
     Route: 065
     Dates: start: 20220301, end: 20220701
  12. REVLIMID [Suspect]
     Active Substance: LENALIDOMIDE
     Indication: Diffuse large B-cell lymphoma
     Dosage: UNK
     Route: 065
     Dates: start: 20230110, end: 20230306
  13. IFOSFAMIDE [Suspect]
     Active Substance: IFOSFAMIDE
     Indication: Diffuse large B-cell lymphoma
     Dosage: UNK
     Route: 065
     Dates: start: 20220710, end: 20220801
  14. VINCRISTINE [Suspect]
     Active Substance: VINCRISTINE
     Indication: Diffuse large B-cell lymphoma
     Dosage: UNK
     Route: 042
     Dates: start: 20181201, end: 20181201
  15. CYCLOPHOSPHAMIDE [Suspect]
     Active Substance: CYCLOPHOSPHAMIDE
     Indication: Diffuse large B-cell lymphoma
     Dosage: UNK
     Route: 065
     Dates: start: 20181201, end: 20181201
  16. CYCLOPHOSPHAMIDE [Suspect]
     Active Substance: CYCLOPHOSPHAMIDE
     Dosage: UNK
     Route: 065
     Dates: start: 20200401, end: 20220101
  17. DOXORUBICIN [Suspect]
     Active Substance: DOXORUBICIN
     Indication: Diffuse large B-cell lymphoma
     Dosage: UNK
     Route: 042
     Dates: start: 20200401, end: 20220101
  18. TAFASITAMAB [Suspect]
     Active Substance: TAFASITAMAB
     Indication: Diffuse large B-cell lymphoma
     Dosage: UNK
     Route: 065
     Dates: start: 20230110, end: 20230306

REACTIONS (3)
  - Thrombocytopenia [Unknown]
  - Disease progression [Unknown]
  - Off label use [Unknown]

NARRATIVE: CASE EVENT DATE: 20181201
